FAERS Safety Report 25743007 (Version 1)
Quarter: 2025Q3

REPORT INFORMATION
  Report Type: Spontaneous
  Country: EU (occurrence: EU)
  Receive Date: 20250830
  Receipt Date: 20250830
  Transmission Date: 20251021
  Serious: Yes (Other)
  Sender: AMGEN
  Company Number: EU-AMGEN-BELSP2025170033

PATIENT
  Age: 75 Year
  Sex: Female

DRUGS (1)
  1. NPLATE [Suspect]
     Active Substance: ROMIPLOSTIM
     Indication: Ovarian cancer stage IV
     Route: 065

REACTIONS (3)
  - Deep vein thrombosis [Unknown]
  - Thrombocytopenia [Unknown]
  - Pulmonary embolism [Unknown]
